FAERS Safety Report 25584786 (Version 1)
Quarter: 2025Q3

REPORT INFORMATION
  Report Type: Spontaneous
  Country: CN (occurrence: CN)
  Receive Date: 20250721
  Receipt Date: 20250721
  Transmission Date: 20251021
  Serious: Yes (Other)
  Sender: AMGEN
  Company Number: CN-AMGEN-CHNSP2025141657

PATIENT
  Age: 17 Year
  Sex: Male

DRUGS (3)
  1. BLINATUMOMAB [Suspect]
     Active Substance: BLINATUMOMAB
     Indication: Acute leukaemia
     Dosage: 9 MICROGRAM, QD, INJECTION IN PUMP
     Route: 065
     Dates: start: 20250615, end: 20250620
  2. SODIUM CHLORIDE [Concomitant]
     Active Substance: SODIUM CHLORIDE
     Dosage: 250 MILLILITER, QD, INJECTION IN PUMP
     Route: 065
     Dates: start: 20250615, end: 20250620
  3. STERILE WATER [Concomitant]
     Active Substance: WATER
     Dosage: 3 MILLILITER, QD, INJECTION IN PUMP
     Route: 065
     Dates: start: 20250615, end: 20250620

REACTIONS (1)
  - Hyperpyrexia [Recovered/Resolved]

NARRATIVE: CASE EVENT DATE: 20250616
